FAERS Safety Report 8608698-9 (Version None)
Quarter: 2012Q3

REPORT INFORMATION
  Report Type: 
  Country: None (occurrence: None)
  Receive Date: 20120809
  Receipt Date: 20120809
  Transmission Date: 20120928
  Serious: Yes (Other)
  Sender: FDA-Public Use
  Company Number: None

PATIENT
  Age: 49 Year
  Sex: Female
  Weight: 56.6996 kg

DRUGS (2)
  1. BUPROPION HCL [Suspect]
     Indication: DEPRESSION
     Dosage: 150 MG DAILY
  2. BUPROPION HCL [Suspect]
     Indication: ANXIETY
     Dosage: 150 MG DAILY

REACTIONS (3)
  - LETHARGY [None]
  - NAUSEA [None]
  - INSOMNIA [None]
